FAERS Safety Report 9660425 (Version 2)
Quarter: 2013Q4

REPORT INFORMATION
  Report Type: Spontaneous
  Country: US (occurrence: US)
  Receive Date: 20131031
  Receipt Date: 20131113
  Transmission Date: 20140711
  Serious: Yes (Other)
  Sender: FDA-Public Use
  Company Number: US-VERTEX PHARMACEUTICALS INC-2013-010675

PATIENT
  Sex: 0

DRUGS (6)
  1. INCIVEK [Suspect]
     Indication: HEPATITIS C
  2. PEGINTERFERON [Suspect]
     Indication: HEPATITIS C
  3. RIBAVIRIN [Suspect]
     Indication: HEPATITIS C
  4. TACROLIMUS [Concomitant]
     Indication: IMMUNOSUPPRESSION
     Dosage: 0.5 MG, Q7-10 DAYS
  5. EVEROLIMUS [Concomitant]
     Indication: IMMUNOSUPPRESSION
     Dosage: 0.25 MG, Q3-5 DAYS
  6. PREDNISONE [Concomitant]
     Indication: IMMUNOSUPPRESSION
     Dosage: 5 MG, QD

REACTIONS (8)
  - Malaise [Unknown]
  - Renal failure acute [Unknown]
  - Anaemia [Unknown]
  - Transplant rejection [Unknown]
  - Hepatitis C [Unknown]
  - Adverse event [Unknown]
  - Off label use [Unknown]
  - Drug ineffective [Unknown]
